FAERS Safety Report 6543978-2 (Version None)
Quarter: 2010Q1

REPORT INFORMATION
  Report Type: 
  Country: None (occurrence: None)
  Receive Date: 20100120
  Receipt Date: 20100108
  Transmission Date: 20100710
  Serious: Yes (Hospitalization, Other)
  Sender: FDA-Public Use
  Company Number: PHHY2010JP01310

PATIENT
  Age: 71 Year
  Sex: Male

DRUGS (7)
  1. TASIGNA [Suspect]
     Indication: CHRONIC MYELOID LEUKAEMIA
     Dosage: 400 MG DAILY
     Route: 048
     Dates: start: 20090901, end: 20090905
  2. TASIGNA [Suspect]
     Dosage: 200 MG DAILY
     Route: 048
     Dates: start: 20090917, end: 20091201
  3. NEUTROGIN [Concomitant]
     Dosage: 100 UG, UNK
     Route: 042
     Dates: start: 20090902
  4. AMBISOME [Concomitant]
     Dosage: 100 MG, UNK
     Route: 042
     Dates: start: 20090901, end: 20091201
  5. MEROPEN [Concomitant]
     Dosage: 2 G, UNK
     Route: 042
     Dates: start: 20090918, end: 20091031
  6. PAZUFLOXACIN [Concomitant]
     Dosage: 1 G, UNK
     Route: 042
     Dates: start: 20091031, end: 20091205
  7. DRUG THERAPY NOS [Concomitant]
     Dosage: 2 G, UNK
     Route: 042
     Dates: start: 20091007, end: 20091010

REACTIONS (5)
  - BLOOD BILIRUBIN INCREASED [None]
  - ELECTROCARDIOGRAM QT PROLONGED [None]
  - FEBRILE NEUTROPENIA [None]
  - PLATELET COUNT DECREASED [None]
  - PLEURAL EFFUSION [None]
